FAERS Safety Report 5854838-4 (Version None)
Quarter: 2008Q3

REPORT INFORMATION
  Report Type: 
  Country: None (occurrence: None)
  Receive Date: 20080822
  Receipt Date: 20080211
  Transmission Date: 20090109
  Serious: No
  Sender: FDA-Public Use
  Company Number: US-ABBOTT-08P-163-0438008-00

PATIENT
  Age: 69 Year
  Sex: Female
  Weight: 90.8 kg

DRUGS (4)
  1. SYNTHROID [Suspect]
     Indication: HYPOTHYROIDISM
     Route: 048
     Dates: start: 20071001
  2. OPANA ER [Suspect]
     Indication: BACK PAIN
     Route: 048
     Dates: start: 20071129, end: 20071202
  3. OPANA [Suspect]
     Indication: BACK PAIN
     Route: 048
     Dates: start: 20071129, end: 20071206
  4. MS CONTIN ER [Concomitant]
     Indication: BACK PAIN
     Dates: start: 20071202

REACTIONS (3)
  - DRUG INEFFECTIVE [None]
  - INSOMNIA [None]
  - PSYCHOMOTOR HYPERACTIVITY [None]
